FAERS Safety Report 7040581-5 (Version None)
Quarter: 2010Q4

REPORT INFORMATION
  Report Type: 
  Country: None (occurrence: None)
  Receive Date: 20101006
  Receipt Date: 20100921
  Transmission Date: 20110411
  Serious: Yes (Life-Threatening, Hospitalization, Other)
  Sender: FDA-Public Use
  Company Number: DSA_65289_2010

PATIENT
  Sex: Female
  Weight: 62.5964 kg

DRUGS (2)
  1. NAPRELAN [Suspect]
     Indication: PLANTAR FASCIITIS
  2. SYNTHROID [Concomitant]

REACTIONS (6)
  - ANAPHYLACTIC REACTION [None]
  - CHEST PAIN [None]
  - CHILLS [None]
  - HEADACHE [None]
  - HYPERSENSITIVITY [None]
  - NAUSEA [None]
